FAERS Safety Report 8740725 (Version 2)
Quarter: 2012Q4

REPORT INFORMATION
  Report Type: 
  Country: US (occurrence: US)
  Receive Date: 20120823
  Receipt Date: 20121005
  Transmission Date: 20130627
  Serious: No
  Sender: FDA-Public Use
  Company Number: US-ASTRAZENECA-2012SE56629

PATIENT
  Age: 72 Year
  Sex: Female
  Weight: 99.8 kg

DRUGS (11)
  1. SYMBICORT [Suspect]
     Indication: ASTHMA
     Dosage: 160/4.5MCG, TWO PUFFS IN MORNING AND TWO PUFFS IN EVENING
     Route: 055
     Dates: start: 2012
  2. SYMBICORT [Suspect]
     Indication: EMPHYSEMA
     Dosage: 160/4.5MCG, TWO PUFFS IN MORNING AND TWO PUFFS IN EVENING
     Route: 055
     Dates: start: 2012
  3. COUMADIN [Concomitant]
     Indication: ATRIAL FIBRILLATION
  4. VITAMINS [Concomitant]
     Dosage: EVERY MORNING
  5. HERBS [Concomitant]
     Dosage: EVERY MORNING
  6. SPIRIVA [Concomitant]
     Dosage: EVERY MORNING
  7. SINGULAIR [Concomitant]
     Dosage: IN THE EVENING
  8. BLOOD PRESSURE MEDICATION [Concomitant]
  9. PRO-AIR [Concomitant]
  10. ALBUTEROL [Concomitant]
  11. IPRATROPIUM [Concomitant]
     Dosage: IN THE NEBULIZER WHEN NEEDED

REACTIONS (3)
  - Dyspnoea [Unknown]
  - Off label use [Unknown]
  - Circumstance or information capable of leading to medication error [Unknown]
